FAERS Safety Report 4628428-5 (Version None)
Quarter: 2005Q2

REPORT INFORMATION
  Report Type: 
  Country: None (occurrence: None)
  Receive Date: 20050404
  Receipt Date: 20050324
  Transmission Date: 20051028
  Serious: Yes (Hospitalization)
  Sender: FDA-Public Use
  Company Number: 2005UW04647

PATIENT
  Age: 65 Year
  Sex: Female
  Weight: 99.79 kg

DRUGS (7)
  1. ATACAND [Suspect]
     Indication: CARDIAC FAILURE CONGESTIVE
     Dosage: 32 MG PO
     Route: 048
     Dates: start: 20050316
  2. ATACAND [Suspect]
     Indication: HYPERTENSION
     Dosage: 32 MG PO
     Route: 048
     Dates: start: 20050316
  3. SPIRONOLACTONE [Concomitant]
  4. SYNTHROID [Concomitant]
  5. COREG [Concomitant]
  6. AZITHROMYCIN [Concomitant]
  7. GLUCOTROID [Concomitant]

REACTIONS (3)
  - BLOOD GLUCOSE INCREASED [None]
  - HEAD INJURY [None]
  - LOSS OF CONSCIOUSNESS [None]
